FAERS Safety Report 12254862 (Version 2)
Quarter: 2016Q2

REPORT INFORMATION
  Report Type: Spontaneous
  Country: US (occurrence: US)
  Receive Date: 20160411
  Receipt Date: 20160615
  Transmission Date: 20160815
  Serious: No
  Sender: FDA-Public Use
  Company Number: ALCN2016US002490

PATIENT
  Age: 80 Year
  Sex: Male

DRUGS (1)
  1. SYSTANE ULTRA [Suspect]
     Active Substance: POLYETHYLENE GLYCOL 400\PROPYLENE GLYCOL
     Indication: EYE LUBRICATION THERAPY
     Dosage: 1 GTT, PRN
     Route: 047
     Dates: end: 20160404

REACTIONS (3)
  - Erythema of eyelid [Not Recovered/Not Resolved]
  - Eye pain [Not Recovered/Not Resolved]
  - Eye irritation [Not Recovered/Not Resolved]

NARRATIVE: CASE EVENT DATE: 20160404
